FAERS Safety Report 15023026 (Version 5)
Quarter: 2018Q4

REPORT INFORMATION
  Report Type: Report from Study
  Country: US (occurrence: US)
  Receive Date: 20180618
  Receipt Date: 20181008
  Transmission Date: 20190204
  Serious: Yes (Hospitalization, Other)
  Sender: FDA-Public Use
  Company Number: US-OTSUKA-2018_015944

PATIENT
  Age: 51 Year
  Sex: Female
  Weight: 95.24 kg

DRUGS (1)
  1. ARIPIPRAZOLE (DUAL CHAMBER) [Suspect]
     Active Substance: ARIPIPRAZOLE
     Indication: SCHIZOPHRENIA
     Dosage: 400 MG, QM
     Route: 030
     Dates: start: 20160930

REACTIONS (3)
  - Hypokalaemia [Unknown]
  - Acute kidney injury [Unknown]
  - Back pain [Unknown]

NARRATIVE: CASE EVENT DATE: 20180610
